FAERS Safety Report 8903390 (Version 2)
Quarter: 2014Q2

REPORT INFORMATION
  Report Type: Report from Study
  Country: MX (occurrence: MX)
  Receive Date: 20121113
  Receipt Date: 20130802
  Transmission Date: 20141212
  Serious: No
  Sender: FDA-Public Use
  Company Number: PHHY2012MX104433

PATIENT
  Age: 87 Year
  Sex: Female

DRUGS (4)
  1. CO-DIOVAN [Suspect]
     Indication: HYPERTENSION
     Dosage: 1 DF (VALS 160 MG/HCT 12.5 MG) PER DAY
     Dates: start: 200811
  2. NOOTROPIL [Concomitant]
     Dosage: UNK UKN, UNK
  3. DEBROMU [Concomitant]
     Dosage: UNK UKN, UNK
  4. ATIVAN [Concomitant]
     Dosage: UNK UKN, UNK

REACTIONS (2)
  - Hypoxia [Not Recovered/Not Resolved]
  - Speech disorder [Not Recovered/Not Resolved]
